FAERS Safety Report 12379026 (Version 1)
Quarter: 2016Q2

REPORT INFORMATION
  Report Type: Spontaneous
  Country: US (occurrence: US)
  Receive Date: 20160517
  Receipt Date: 20160517
  Transmission Date: 20160815
  Serious: No
  Sender: FDA-Public Use
  Company Number: US-BAYER-2016-092740

PATIENT
  Sex: Female

DRUGS (1)
  1. MIRENA [Suspect]
     Active Substance: LEVONORGESTREL
     Dosage: 20 MCG/24HR, CONT
     Route: 015

REACTIONS (9)
  - Vulvovaginitis [None]
  - Abdominal pain [None]
  - Seborrhoea [None]
  - Pelvic pain [None]
  - Acne [None]
  - Weight increased [None]
  - Ovarian cyst [None]
  - Headache [None]
  - Menstruation irregular [None]
